FAERS Safety Report 16398970 (Version 1)
Quarter: 2019Q2

REPORT INFORMATION
  Report Type: Spontaneous
  Country: FR (occurrence: FR)
  Receive Date: 20190606
  Receipt Date: 20190606
  Transmission Date: 20190711
  Serious: Yes (Hospitalization)
  Sender: FDA-Public Use
  Company Number: FR-MYLANLABS-2019M1053600

PATIENT
  Age: 59 Year
  Sex: Female
  Weight: 80 kg

DRUGS (2)
  1. PYOSTACINE [Suspect]
     Active Substance: PRISTINAMYCIN
     Indication: PARONYCHIA
     Dosage: 1 DOSAGE FORM, TOTAL
     Route: 048
     Dates: start: 20180517, end: 20180517
  2. IBUPROFEN. [Suspect]
     Active Substance: IBUPROFEN
     Indication: PARONYCHIA
     Dosage: 600 MILLIGRAM, TOTAL
     Route: 048
     Dates: start: 20180517, end: 20180517

REACTIONS (4)
  - Urticaria [Recovered/Resolved]
  - Cholestasis [Recovered/Resolved]
  - Laryngeal oedema [Recovered/Resolved]
  - Hepatocellular injury [Recovered/Resolved]

NARRATIVE: CASE EVENT DATE: 20180517
